FAERS Safety Report 4660046-5 (Version None)
Quarter: 2005Q2

REPORT INFORMATION
  Report Type: 
  Country: None (occurrence: None)
  Receive Date: 20050512
  Receipt Date: 20050506
  Transmission Date: 20051028
  Serious: Yes (Death)
  Sender: FDA-Public Use
  Company Number: PHHO2005ES07257

PATIENT
  Age: 72 Year
  Sex: Female

DRUGS (2)
  1. STEROIDS NOS [Concomitant]
  2. NEORAL [Suspect]
     Dosage: 75 MG, QD
     Route: 048
     Dates: start: 20020404

REACTIONS (1)
  - PNEUMONIA [None]
